FAERS Safety Report 10052975 (Version 1)
Quarter: 2014Q2

REPORT INFORMATION
  Report Type: Spontaneous
  Country: AT (occurrence: AT)
  Receive Date: 20140402
  Receipt Date: 20140402
  Transmission Date: 20141212
  Serious: Yes (Hospitalization)
  Sender: FDA-Public Use
  Company Number: PHHY2014AT036405

PATIENT
  Age: 72 Year
  Sex: Male

DRUGS (3)
  1. EBETREXAT [Suspect]
     Indication: RHEUMATOID ARTHRITIS
     Dosage: 30 MG, QW
     Dates: start: 201209
  2. CIMZIA [Suspect]
     Indication: RHEUMATOID ARTHRITIS
     Dosage: 150 MG, QW2
     Dates: start: 201210
  3. APREDNISLON [Suspect]
     Indication: RHEUMATOID ARTHRITIS
     Dosage: 2.5 MG, QD

REACTIONS (2)
  - Eyelid ptosis [Not Recovered/Not Resolved]
  - Diplopia [Not Recovered/Not Resolved]
